FAERS Safety Report 15949514 (Version 3)
Quarter: 2019Q2

REPORT INFORMATION
  Report Type: Spontaneous
  Country: US (occurrence: US)
  Receive Date: 20190211
  Receipt Date: 20190411
  Transmission Date: 20190711
  Serious: Yes (Other)
  Sender: FDA-Public Use
  Company Number: US-ASTRAZENECA-2018SF22579

PATIENT
  Sex: Male
  Weight: 77.1 kg

DRUGS (52)
  1. PREVACID [Suspect]
     Active Substance: LANSOPRAZOLE
     Route: 048
     Dates: start: 20041102
  2. VIAGRA [Concomitant]
     Active Substance: SILDENAFIL CITRATE
  3. NITROQUICK [Concomitant]
     Active Substance: NITROGLYCERIN
  4. AVALIDE [Concomitant]
     Active Substance: HYDROCHLOROTHIAZIDE\IRBESARTAN
  5. PENICILLIN NOS [Concomitant]
     Active Substance: PENICILLIN
  6. CELEBREX [Concomitant]
     Active Substance: CELECOXIB
  7. AMLODIPINE BESYLATE. [Concomitant]
     Active Substance: AMLODIPINE BESYLATE
  8. ACTOS [Concomitant]
     Active Substance: PIOGLITAZONE HYDROCHLORIDE
  9. ZETIA [Concomitant]
     Active Substance: EZETIMIBE
  10. GLIPIZIDE. [Concomitant]
     Active Substance: GLIPIZIDE
  11. ATORVASTATIN [Concomitant]
     Active Substance: ATORVASTATIN
  12. NEXIUM [Suspect]
     Active Substance: ESOMEPRAZOLE MAGNESIUM
     Route: 048
     Dates: start: 20041102
  13. PRILOSEC [Suspect]
     Active Substance: OMEPRAZOLE MAGNESIUM
     Route: 048
     Dates: start: 20041102
  14. DEXILANT [Suspect]
     Active Substance: DEXLANSOPRAZOLE
     Route: 065
     Dates: start: 20041102, end: 20150121
  15. NORVASC [Concomitant]
     Active Substance: AMLODIPINE BESYLATE
  16. FLOMAX [Concomitant]
     Active Substance: TAMSULOSIN HYDROCHLORIDE
  17. POLYETHYLENE GLYCOL [Concomitant]
     Active Substance: POLYETHYLENE GLYCOLS
  18. ALLOPURINOL. [Concomitant]
     Active Substance: ALLOPURINOL
  19. FUROSEMIDE. [Concomitant]
     Active Substance: FUROSEMIDE
  20. NIASPAN [Concomitant]
     Active Substance: NIACIN
  21. HYZAAR [Concomitant]
     Active Substance: HYDROCHLOROTHIAZIDE\LOSARTAN POTASSIUM
  22. AMITRIPTYLINE [Concomitant]
     Active Substance: AMITRIPTYLINE
  23. DIOVAN [Concomitant]
     Active Substance: VALSARTAN
  24. ASPIRIN. [Concomitant]
     Active Substance: ASPIRIN
  25. RANITIDINE. [Concomitant]
     Active Substance: RANITIDINE
  26. ALIGN [Concomitant]
     Active Substance: BIFIDOBACTERIUM LONGUM SUBSP. INFANTIS
  27. DEXILANT [Suspect]
     Active Substance: DEXLANSOPRAZOLE
     Dosage: 60.0MG UNKNOWN
     Route: 065
     Dates: start: 20120225
  28. PLAVIX [Concomitant]
     Active Substance: CLOPIDOGREL BISULFATE
  29. FAMOTIDINE. [Concomitant]
     Active Substance: FAMOTIDINE
  30. WARFARIN SODIUM. [Concomitant]
     Active Substance: WARFARIN SODIUM
  31. PREVACID [Suspect]
     Active Substance: LANSOPRAZOLE
     Route: 048
     Dates: start: 20041102, end: 20150121
  32. METOPROLOL. [Concomitant]
     Active Substance: METOPROLOL
  33. SUCRALFATE. [Concomitant]
     Active Substance: SUCRALFATE
  34. BENICAR [Concomitant]
     Active Substance: OLMESARTAN MEDOXOMIL
  35. VALSARTAN. [Concomitant]
     Active Substance: VALSARTAN
  36. AVALIDE [Concomitant]
     Active Substance: HYDROCHLOROTHIAZIDE\IRBESARTAN
  37. MAG-OX [Concomitant]
     Active Substance: MAGNESIUM OXIDE
  38. TAMIFLU [Concomitant]
     Active Substance: OSELTAMIVIR PHOSPHATE
  39. TRAMADOL. [Concomitant]
     Active Substance: TRAMADOL
  40. TAMSULOSIN [Concomitant]
     Active Substance: TAMSULOSIN
  41. NEXIUM [Suspect]
     Active Substance: ESOMEPRAZOLE MAGNESIUM
     Route: 048
     Dates: start: 20041102, end: 20150121
  42. PRILOSEC [Suspect]
     Active Substance: OMEPRAZOLE MAGNESIUM
     Route: 048
     Dates: start: 20041102, end: 20150121
  43. POTASSIUM CHLORIDE. [Concomitant]
     Active Substance: POTASSIUM CHLORIDE
  44. CHANTIX [Concomitant]
     Active Substance: VARENICLINE TARTRATE
  45. HYDROCODONE BITARTRATE AND ACETAMINOPHEN [Concomitant]
     Active Substance: ACETAMINOPHEN\HYDROCODONE BITARTRATE
  46. FLUZONE [Concomitant]
     Active Substance: INFLUENZA A VIRUS A/CALIFORNIA/7/2009 X-179A (H1N1) ANTIGEN (FORMALDEHYDE INACTIVATED)\INFLUENZA A VIRUS A/VICTORIA/210/2009 X-187 (H3N2) ANTIGEN (FORMALDEHYDE INACTIVATED)\INFLUENZA B VIRUS B/BRISBANE/60/2008 ANTIGEN (FORMALDEHYDE INACTIVATED)
  47. PROAIR HFA [Concomitant]
     Active Substance: ALBUTEROL SULFATE
  48. FLULAVAL [Concomitant]
  49. METRONIDAZOLE. [Concomitant]
     Active Substance: METRONIDAZOLE
  50. PRAVASTATIN. [Concomitant]
     Active Substance: PRAVASTATIN
  51. DILTIAZEM. [Concomitant]
     Active Substance: DILTIAZEM
  52. CARVEDILOL. [Concomitant]
     Active Substance: CARVEDILOL

REACTIONS (2)
  - Chronic kidney disease [Not Recovered/Not Resolved]
  - Acute kidney injury [Unknown]
